FAERS Safety Report 7033611-8 (Version None)
Quarter: 2010Q4

REPORT INFORMATION
  Report Type: 
  Country: None (occurrence: None)
  Receive Date: 20101007
  Receipt Date: 20100926
  Transmission Date: 20110411
  Serious: Yes (Death, Other)
  Sender: FDA-Public Use
  Company Number: DE-ACTELION-A-US2010-39491

PATIENT

DRUGS (4)
  1. VENTAVIS BAYER SCHERING [Suspect]
     Indication: PULMONARY ARTERIAL HYPERTENSION
     Dosage: UNK UG, 8 X DAY
     Route: 055
  2. COUMADIN [Concomitant]
  3. VASTAREL [Concomitant]
  4. ALDACTAZIDE [Concomitant]

REACTIONS (1)
  - CEREBRAL HAEMORRHAGE [None]
